FAERS Safety Report 23251017 (Version 4)
Quarter: 2024Q1

REPORT INFORMATION
  Report Type: Spontaneous
  Country: US (occurrence: US)
  Receive Date: 20231201
  Receipt Date: 20240201
  Transmission Date: 20240410
  Serious: No
  Sender: FDA-Public Use
  Company Number: US-PFIZER INC-202300384710

PATIENT
  Age: 11 Year
  Sex: Male

DRUGS (1)
  1. GENOTROPIN [Suspect]
     Active Substance: SOMATROPIN
     Indication: Short stature
     Dosage: 1.6 MG, 1X/DAY (ONCE A DAY IN EVENING)

REACTIONS (4)
  - Drug dose omission by device [Unknown]
  - Poor quality device used [Unknown]
  - Device use error [Unknown]
  - Device breakage [Unknown]
